FAERS Safety Report 6277702-8 (Version None)
Quarter: 2009Q3

REPORT INFORMATION
  Report Type: 
  Country: None (occurrence: None)
  Receive Date: 20090722
  Receipt Date: 20090713
  Transmission Date: 20100115
  Serious: Yes (Hospitalization)
  Sender: FDA-Public Use
  Company Number: A0789389A

PATIENT
  Age: 62 Year
  Sex: Female
  Weight: 87.3 kg

DRUGS (7)
  1. TYKERB [Suspect]
     Indication: BREAST CANCER
     Dosage: 1250MG PER DAY
     Route: 048
     Dates: start: 20090508, end: 20090531
  2. PREVACID [Concomitant]
     Dosage: 20MG PER DAY
  3. QUINAPRIL [Concomitant]
     Dosage: 20MG PER DAY
  4. QUINAPRIL HCL AND HYDROCHLOROTHIAZIDE [Concomitant]
  5. ASPIRIN [Concomitant]
  6. CALCIUM [Concomitant]
  7. XELODA [Concomitant]

REACTIONS (10)
  - ACTIVITIES OF DAILY LIVING IMPAIRED [None]
  - DIARRHOEA [None]
  - DRY SKIN [None]
  - HYPERAESTHESIA [None]
  - HYPOAESTHESIA [None]
  - NAIL DISORDER [None]
  - NAUSEA [None]
  - ONYCHOCLASIS [None]
  - PALMAR-PLANTAR ERYTHRODYSAESTHESIA SYNDROME [None]
  - SKIN EXFOLIATION [None]
